FAERS Safety Report 21375396 (Version 2)
Quarter: 2022Q4

REPORT INFORMATION
  Report Type: Spontaneous
  Country: US (occurrence: US)
  Receive Date: 20220926
  Receipt Date: 20221219
  Transmission Date: 20230113
  Serious: Yes (Other)
  Sender: FDA-Public Use
  Company Number: US-NOVARTISPH-NVSC2022US215164

PATIENT
  Sex: Female

DRUGS (1)
  1. TABRECTA [Suspect]
     Active Substance: CAPMATINIB
     Indication: Product used for unknown indication
     Dosage: 200 MG, QD
     Route: 065

REACTIONS (4)
  - Choking [Unknown]
  - Peripheral swelling [Unknown]
  - Product use complaint [Unknown]
  - Wrong technique in product usage process [Unknown]
